FAERS Safety Report 4633098-6 (Version None)
Quarter: 2005Q2

REPORT INFORMATION
  Report Type: 
  Country: None (occurrence: None)
  Receive Date: 20050412
  Receipt Date: 20050404
  Transmission Date: 20051028
  Serious: Yes (Hospitalization)
  Sender: FDA-Public Use
  Company Number: PHEH2005US03981

PATIENT
  Age: 81 Year
  Sex: Female

DRUGS (7)
  1. ZELNORM [Suspect]
     Indication: CONSTIPATION
     Dosage: 2 MG, BID
     Route: 048
     Dates: start: 20050325, end: 20050326
  2. BETAPACE [Concomitant]
     Dosage: 120 MG, BID
     Route: 048
  3. OSCAL [Concomitant]
  4. VITAMIN D [Concomitant]
  5. MIACALCIN [Concomitant]
     Dosage: 200 IU, UNK
  6. CORTISONE [Concomitant]
  7. ANTIBIOTICS [Concomitant]

REACTIONS (9)
  - ABDOMINAL PAIN [None]
  - COLITIS ISCHAEMIC [None]
  - COLONOSCOPY ABNORMAL [None]
  - DIARRHOEA [None]
  - ERYTHEMA [None]
  - GASTROINTESTINAL OEDEMA [None]
  - INFLAMMATION [None]
  - INTESTINAL ULCER [None]
  - WHITE BLOOD CELL COUNT INCREASED [None]
